FAERS Safety Report 8256431-5 (Version None)
Quarter: 2012Q2

REPORT INFORMATION
  Report Type: 
  Country: None (occurrence: None)
  Receive Date: 20120403
  Receipt Date: 20120328
  Transmission Date: 20120825
  Serious: Yes (Other)
  Sender: FDA-Public Use
  Company Number: SE-PFIZER INC-2012079125

PATIENT
  Age: 70 Year
  Sex: Male

DRUGS (2)
  1. LYRICA [Suspect]
     Indication: ANXIETY
     Dosage: 75 MG, 2X/DAY
     Dates: start: 20120201
  2. METOPROLOL SUCCINATE [Concomitant]
     Dosage: 100 MG DAILY

REACTIONS (1)
  - BLOOD PRESSURE INCREASED [None]
